FAERS Safety Report 24244531 (Version 2)
Quarter: 2024Q4

REPORT INFORMATION
  Report Type: Report from Study
  Country: US (occurrence: US)
  Receive Date: 20240823
  Receipt Date: 20241002
  Transmission Date: 20250114
  Serious: Yes (Death, Other)
  Sender: JAZZ
  Company Number: US-JAZZ PHARMACEUTICALS-2024-US-013278

PATIENT
  Sex: Male
  Weight: 52.7 kg

DRUGS (2)
  1. LURBINECTEDIN [Suspect]
     Active Substance: LURBINECTEDIN
     Indication: Product used for unknown indication
     Dosage: UNK
  2. TRASTUZUMAB [Suspect]
     Active Substance: TRASTUZUMAB
     Indication: Desmoplastic small round cell tumour
     Dosage: 5.4 MILLIGRAM/KILOGRAM, Q4D
     Dates: start: 20231020, end: 20240627

REACTIONS (1)
  - Neoplasm malignant [Fatal]
